FAERS Safety Report 16515870 (Version 1)
Quarter: 2019Q3

REPORT INFORMATION
  Report Type: Spontaneous
  Country: US (occurrence: US)
  Receive Date: 20190702
  Receipt Date: 20190702
  Transmission Date: 20191004
  Serious: No
  Sender: FDA-Public Use
  Company Number: US-PFIZER INC-2019278164

PATIENT
  Age: 61 Year
  Sex: Female
  Weight: 68.21 kg

DRUGS (6)
  1. VITAMIN B-COMPLEX [VITAMIN B COMPLEX] [Concomitant]
     Dosage: UNK
  2. NAPROSYN E [Concomitant]
     Active Substance: NAPROXEN
     Dosage: 500 MG, UNK
  3. SOMAVERT [Suspect]
     Active Substance: PEGVISOMANT
     Indication: ACROMEGALY
     Dosage: 20 MG, DAILY (UNDER THE SKIN)
  4. SOMAVERT [Suspect]
     Active Substance: PEGVISOMANT
     Indication: GIGANTISM
  5. SOMAVERT [Suspect]
     Active Substance: PEGVISOMANT
     Indication: ILL-DEFINED DISORDER
  6. IBUPROFEN. [Concomitant]
     Active Substance: IBUPROFEN
     Dosage: 200 MG, UNK

REACTIONS (1)
  - Blood test abnormal [Unknown]
